FAERS Safety Report 8909329 (Version 2)
Quarter: 2013Q1

REPORT INFORMATION
  Report Type: Spontaneous
  Country: US (occurrence: US)
  Receive Date: 20121115
  Receipt Date: 20130131
  Transmission Date: 20140127
  Serious: No
  Sender: FDA-Public Use
  Company Number: US-B.I. PHARMACEUTICALS,INC./RIDGEFIELD-2012-BP-27542BP

PATIENT
  Age: 74 Year
  Sex: Female
  Weight: 64 kg

DRUGS (5)
  1. SPIRIVA [Suspect]
     Indication: CHRONIC OBSTRUCTIVE PULMONARY DISEASE
     Dosage: 18 MCG
     Route: 055
     Dates: start: 20060915
  2. VITAMINS [Concomitant]
     Route: 048
  3. ASA [Concomitant]
     Dosage: 325 MG
     Dates: start: 201204
  4. KLONOPIN [Concomitant]
     Indication: RESTLESS LEGS SYNDROME
     Dosage: 0.25 MG
  5. VITAMIN B12 [Concomitant]
     Indication: VITAMIN B12 DECREASED
     Dates: start: 20120807

REACTIONS (3)
  - Rash [Recovered/Resolved]
  - Macular degeneration [Not Recovered/Not Resolved]
  - Product quality issue [Recovered/Resolved]
